FAERS Safety Report 9999126 (Version 1)
Quarter: 2014Q1

REPORT INFORMATION
  Report Type: Report from Study
  Country: TW (occurrence: TW)
  Receive Date: 20140312
  Receipt Date: 20140312
  Transmission Date: 20141002
  Serious: No
  Sender: FDA-Public Use
  Company Number: TW-JNJFOC-20140115787

PATIENT
  Age: 43 Year
  Sex: Female

DRUGS (1)
  1. USTEKINUMAB [Suspect]
     Indication: PSORIASIS
     Route: 058
     Dates: start: 20130122, end: 20130122

REACTIONS (1)
  - Hepatitis B [Recovered/Resolved]
